FAERS Safety Report 10723663 (Version 1)
Quarter: 2015Q1

REPORT INFORMATION
  Report Type: Spontaneous
  Country: US (occurrence: US)
  Receive Date: 20150120
  Receipt Date: 20150120
  Transmission Date: 20150721
  Serious: No
  Sender: FDA-Public Use
  Company Number: US-SHIRE-US201500299

PATIENT
  Age: 13 Year
  Sex: Female
  Weight: 56.6 kg

DRUGS (2)
  1. CINRYZE [Suspect]
     Active Substance: HUMAN C1-ESTERASE INHIBITOR
     Indication: IDIOPATHIC ANGIOEDEMA
     Dosage: 1000 UNITS, OTHER (EVERY 3-4 DAYS)
     Route: 042
     Dates: start: 201501
  2. FIRAZYR [Suspect]
     Active Substance: ICATIBANT ACETATE
     Indication: IDIOPATHIC ANGIOEDEMA
     Dosage: 30 MG, AS REQ^D
     Route: 058
     Dates: start: 201410

REACTIONS (5)
  - Infusion site pain [Recovering/Resolving]
  - Product use issue [Not Recovered/Not Resolved]
  - Infusion related reaction [Recovering/Resolving]
  - Underdose [Unknown]
  - Infusion site oedema [Recovering/Resolving]

NARRATIVE: CASE EVENT DATE: 201410
